FAERS Safety Report 9864140 (Version 2)
Quarter: 2014Q1

REPORT INFORMATION
  Report Type: Spontaneous
  Country: US (occurrence: US)
  Receive Date: 20140203
  Receipt Date: 20140203
  Transmission Date: 20141002
  Serious: Yes (Other)
  Sender: FDA-Public Use
  Company Number: US-PFIZER INC-2014021349

PATIENT
  Age: 71 Year
  Sex: Female
  Weight: 71.2 kg

DRUGS (1)
  1. LYRICA [Suspect]
     Indication: CENTRAL PAIN SYNDROME
     Dosage: 100 MG IN AM, 100 MG IN MID-AFTERNOON, 150 MG AT NIGHT
     Route: 048
     Dates: start: 200808

REACTIONS (2)
  - Off label use [Unknown]
  - Blood creatinine increased [Unknown]
